FAERS Safety Report 9796216 (Version 1)
Quarter: 2014Q1

REPORT INFORMATION
  Report Type: Spontaneous
  Country: GB (occurrence: GB)
  Receive Date: 20140103
  Receipt Date: 20140103
  Transmission Date: 20141002
  Serious: Yes (Hospitalization)
  Sender: FDA-Public Use
  Company Number: GB-PFIZER INC-2014000266

PATIENT
  Age: 82 Year
  Sex: Male

DRUGS (11)
  1. AMIODARONE HCL [Suspect]
     Indication: ATRIAL FIBRILLATION
     Dosage: 100 MG, DAILY
     Route: 048
     Dates: end: 20131122
  2. ATORVASTATIN [Concomitant]
     Dosage: UNK
  3. FINASTERIDE [Concomitant]
     Dosage: UNK
  4. FLUCLOXACILLIN [Concomitant]
     Dosage: UNK
  5. FLUDROCORTISONE [Concomitant]
     Dosage: UNK
  6. FOLIC ACID [Concomitant]
     Dosage: UNK
  7. LANSOPRAZOLE [Concomitant]
     Dosage: UNK
  8. MEMANTINE [Concomitant]
     Dosage: UNK
  9. MIRTAZAPINE [Concomitant]
     Dosage: UNK
  10. PREDNISOLONE [Concomitant]
     Dosage: UNK
  11. TRIMETHOPRIM [Concomitant]
     Dosage: UNK

REACTIONS (1)
  - Thyroiditis [Recovering/Resolving]
